FAERS Safety Report 10395592 (Version 1)
Quarter: 2014Q1

REPORT INFORMATION
  Report Type: Spontaneous
  Country: US (occurrence: None)
  Receive Date: 20130301
  Receipt Date: 20130301
  Transmission Date: 20141002
  Serious: Yes (Hospitalization)
  Sender: FDA-Public Use
  Company Number: RB-32364-2011

PATIENT
  Age: 58 Year
  Sex: Female

DRUGS (2)
  1. SUBOXONE [Suspect]
     Indication: PAIN MANAGEMENT
     Route: 060
     Dates: start: 201010, end: 201205
  2. ISONIAZID [Suspect]
     Indication: TUBERCULOSIS
     Route: 048

REACTIONS (8)
  - Facial pain [None]
  - Off label use [None]
  - Confusional state [None]
  - Insomnia [None]
  - Anxiety [None]
  - Weight increased [None]
  - Pruritus [None]
  - Hypoaesthesia oral [None]
